FAERS Safety Report 5996374-0 (Version None)
Quarter: 2008Q4

REPORT INFORMATION
  Report Type: 
  Country: None (occurrence: None)
  Receive Date: 20081212
  Receipt Date: 20081016
  Transmission Date: 20090506
  Serious: No
  Sender: FDA-Public Use
  Company Number: US-ABBOTT-08P-163-0482101-00

PATIENT
  Sex: Female
  Weight: 63.56 kg

DRUGS (7)
  1. HUMIRA [Suspect]
     Indication: RHEUMATOID ARTHRITIS
     Route: 058
     Dates: start: 20061201, end: 20080808
  2. HUMIRA [Suspect]
     Route: 058
     Dates: start: 20080808
  3. HYDROXYCHLOROQUINE SULFATE [Concomitant]
     Indication: DRUG USE FOR UNKNOWN INDICATION
     Route: 048
  4. IBUPROFEN [Concomitant]
     Indication: DRUG USE FOR UNKNOWN INDICATION
     Route: 048
  5. FLEXERIL [Concomitant]
     Indication: DRUG USE FOR UNKNOWN INDICATION
     Route: 048
  6. CLIMARA [Concomitant]
     Indication: HORMONE REPLACEMENT THERAPY
     Route: 062
  7. OXY IR [Concomitant]
     Indication: PAIN
     Dosage: PRESCRIBED AS NEEDED BUT TAKES EVERYDAY
     Route: 048

REACTIONS (1)
  - DRUG INEFFECTIVE [None]
